FAERS Safety Report 5442924-2 (Version None)
Quarter: 2007Q3

REPORT INFORMATION
  Report Type: 
  Country: None (occurrence: None)
  Receive Date: 20070830
  Receipt Date: 20070817
  Transmission Date: 20080115
  Serious: Yes (Life-Threatening)
  Sender: FDA-Public Use
  Company Number: CA-JNJFOC-20070803785

PATIENT
  Age: 48 Year
  Sex: Female
  Weight: 64.6 kg

DRUGS (4)
  1. DECITABINE (DECITABINE) LYOPHILIZED POWDER [Suspect]
     Indication: ACUTE MYELOID LEUKAEMIA
     Dosage: 20 MG/M2, INTRAVENOUS
     Route: 042
     Dates: start: 20070723, end: 20070727
  2. DECITABINE (DECITABINE) LYOPHILIZED POWDER [Suspect]
     Indication: ACUTE MYELOID LEUKAEMIA
     Dosage: 20 MG/M2, INTRAVENOUS
     Route: 042
     Dates: start: 20070528
  3. VORINOSTAT (ANTINEOPLASTIC AGENTS) UNSPECIFIED [Suspect]
     Indication: ACUTE MYELOID LEUKAEMIA
     Dosage: 200 MG, 2 IN 1 DAY, ORAL
     Route: 048
     Dates: start: 20070723, end: 20070731
  4. VORINOSTAT (ANTINEOPLASTIC AGENTS) UNSPECIFIED [Suspect]
     Indication: ACUTE MYELOID LEUKAEMIA
     Dosage: 200 MG, 2 IN 1 DAY, ORAL
     Route: 048
     Dates: start: 20070528

REACTIONS (2)
  - PLATELET COUNT DECREASED [None]
  - PULMONARY EMBOLISM [None]
